FAERS Safety Report 10682040 (Version 1)
Quarter: 2014Q4

REPORT INFORMATION
  Report Type: Spontaneous
  Country: US (occurrence: US)
  Receive Date: 20141230
  Receipt Date: 20141230
  Transmission Date: 20150529
  Serious: No
  Sender: FDA-Public Use
  Company Number: US-PFIZER INC-2014352308

PATIENT
  Age: 54 Year
  Sex: Female
  Weight: 64 kg

DRUGS (9)
  1. NEURONTIN [Suspect]
     Active Substance: GABAPENTIN
     Indication: NEUROMYELITIS OPTICA
  2. VITAMIN D3 [Concomitant]
     Active Substance: CHOLECALCIFEROL
     Dosage: UNK
  3. CALCIUM [Concomitant]
     Active Substance: CALCIUM
     Dosage: UNK
  4. FLAXSEED [Concomitant]
     Active Substance: FLAX SEED
     Dosage: UNK
  5. NEURONTIN [Suspect]
     Active Substance: GABAPENTIN
     Indication: PAIN
  6. ZOLPIDEM [Concomitant]
     Active Substance: ZOLPIDEM\ZOLPIDEM TARTRATE
     Indication: INITIAL INSOMNIA
     Dosage: UNK, 1X/DAY (NIGHTLY)
     Dates: start: 2007
  7. ATORVASTATIN [Concomitant]
     Active Substance: ATORVASTATIN
     Indication: BLOOD CHOLESTEROL INCREASED
     Dosage: UNK
     Dates: start: 2007
  8. NEURONTIN [Suspect]
     Active Substance: GABAPENTIN
     Indication: MULTIPLE SCLEROSIS
     Dosage: UNK
     Dates: start: 2009, end: 2009
  9. VITAMIN B COMPLEX [Concomitant]
     Active Substance: CYANOCOBALAMIN\DEXPANTHENOL\NIACINAMIDE\PYRIDOXINE HYDROCHLORIDE\RIBOFLAVIN 5^-PHOSPHATE SODIUM\THIAMINE HYDROCHLORIDE\VITAMIN B COMPLEX
     Dosage: UNK

REACTIONS (3)
  - Drug ineffective for unapproved indication [Unknown]
  - Weight increased [Unknown]
  - Fluid retention [Unknown]

NARRATIVE: CASE EVENT DATE: 2009
